FAERS Safety Report 7934138-9 (Version None)
Quarter: 2011Q4

REPORT INFORMATION
  Report Type: 
  Country: None (occurrence: None)
  Receive Date: 20111116
  Receipt Date: 20111107
  Transmission Date: 20120403
  Serious: Yes (Hospitalization)
  Sender: FDA-Public Use
  Company Number: 2011SP040232

PATIENT
  Age: 40 Year
  Sex: Female

DRUGS (2)
  1. CELESTAMINE TAB [Suspect]
     Indication: DERMATITIS ALLERGIC
     Dosage: 2 MG, QD, PO
     Route: 048
     Dates: start: 20110301, end: 20110701
  2. PREDNISOLONE [Concomitant]

REACTIONS (7)
  - GLYCOSYLATED HAEMOGLOBIN INCREASED [None]
  - HEADACHE [None]
  - INCREASED APPETITE [None]
  - WEIGHT INCREASED [None]
  - BLOOD GLUCOSE INCREASED [None]
  - CUSHINGOID [None]
  - MALAISE [None]
